FAERS Safety Report 4423153-8 (Version None)
Quarter: 2004Q3

REPORT INFORMATION
  Report Type: 
  Country: None (occurrence: None)
  Receive Date: 20040811
  Receipt Date: 20040706
  Transmission Date: 20050211
  Serious: Yes (Hospitalization)
  Sender: FDA-Public Use
  Company Number: US-MERCK-0407USA00441

PATIENT
  Age: 64 Year
  Sex: Female
  Weight: 63 kg

DRUGS (6)
  1. FOSAMAX [Suspect]
     Indication: OSTEOPOROSIS
     Route: 048
     Dates: start: 19990101
  2. CALCIUM (UNSPECIFIED) [Suspect]
     Route: 048
     Dates: end: 20040101
  3. CALCIUM (UNSPECIFIED) [Suspect]
     Route: 048
     Dates: start: 20040101
  4. CELEBREX [Concomitant]
     Indication: OSTEOARTHRITIS
     Route: 065
  5. FOLIC ACID [Concomitant]
     Indication: BLOOD HOMOCYSTEINE INCREASED
     Route: 065
  6. VITAMIN D (UNSPECIFIED) [Concomitant]
     Indication: BLOOD HOMOCYSTEINE INCREASED
     Route: 065

REACTIONS (2)
  - CALCULUS URETERIC [None]
  - URINE CALCIUM INCREASED [None]
